FAERS Safety Report 7198366-5 (Version None)
Quarter: 2010Q4

REPORT INFORMATION
  Report Type: 
  Country: None (occurrence: None)
  Receive Date: 20101227
  Receipt Date: 20101217
  Transmission Date: 20110411
  Serious: Yes (Life-Threatening, Hospitalization, Disabling, Other)
  Sender: FDA-Public Use
  Company Number: JP-GENZYME-THYM-1002123

PATIENT
  Sex: Female
  Weight: 57 kg

DRUGS (47)
  1. THYMOGLOBULIN [Suspect]
     Indication: APLASTIC ANAEMIA
     Dosage: 135 MG, QD
     Route: 042
     Dates: start: 20091109, end: 20091113
  2. CYCLOSPORINE [Concomitant]
     Indication: APLASTIC ANAEMIA
     Dosage: UNK
     Dates: start: 20090413, end: 20091207
  3. LEVOFLOXACIN [Concomitant]
     Indication: ANTIBIOTIC PROPHYLAXIS
     Dosage: UNK
     Dates: start: 20091106, end: 20091127
  4. FLUCONAZOLE [Concomitant]
     Indication: ANTIFUNGAL PROPHYLAXIS
     Dosage: UNK
     Dates: start: 20091106
  5. SULFAMETHOXAZOLE AND TRIMETHOPRIM [Concomitant]
     Indication: ANTIFUNGAL PROPHYLAXIS
     Dosage: UNK
     Dates: start: 20091106
  6. RANITIDINE HYDROCHLORIDE [Concomitant]
     Indication: PROPHYLAXIS AGAINST GASTROINTESTINAL ULCER
     Dosage: UNK
     Dates: start: 20091106
  7. MAGNESIUM OXIDE [Concomitant]
     Indication: CONSTIPATION
     Dosage: UNK
     Dates: start: 20091110, end: 20100310
  8. SODIUM BICARBONATE [Concomitant]
     Indication: CONSTIPATION
     Dosage: UNK
     Dates: start: 20091111, end: 20091111
  9. SODIUM BICARBONATE [Concomitant]
     Indication: STOMATITIS
     Dosage: UNK
     Dates: start: 20091116
  10. SODIUM BICARBONATE [Concomitant]
     Dosage: UNK
     Dates: start: 20091214, end: 20100121
  11. SODIUM PHOSPHATE MONOBASIC [Concomitant]
     Indication: CONSTIPATION
     Dosage: UNK
     Dates: start: 20091111, end: 20091111
  12. AZULENE [Concomitant]
     Indication: STOMATITIS
     Dosage: UNK
     Dates: start: 20091116
  13. AZULENE [Concomitant]
     Dosage: UNK
     Dates: start: 20091204, end: 20100121
  14. METHYLPREDNISOLONE SODIUM SUCCINATE [Concomitant]
     Indication: PREMEDICATION
     Dosage: UNK
     Dates: start: 20091109, end: 20091113
  15. PREDNISOLONE [Concomitant]
     Indication: PREMEDICATION
     Dosage: UNK
     Dates: start: 20091114, end: 20091117
  16. PREDNISOLONE [Concomitant]
     Dosage: UNK
     Dates: start: 20090101, end: 20091204
  17. DEXAMETHASONE [Concomitant]
     Indication: STOMATITIS
     Dosage: UNK
     Dates: start: 20091120, end: 20100121
  18. DEXAMETHASONE [Concomitant]
     Dosage: UNK
     Dates: start: 20100329
  19. LIDOCAINE HYDROCHLORIDE [Concomitant]
     Indication: STOMATITIS
     Dosage: UNK
     Dates: start: 20091126, end: 20100121
  20. ACRINOL [Concomitant]
     Indication: STOMATITIS
     Dosage: UNK
     Dates: start: 20091126, end: 20100121
  21. WHITE PETROLATUM [Concomitant]
     Indication: STOMATITIS
     Dosage: UNK
     Dates: start: 20091127, end: 20100121
  22. VALSARTAN [Concomitant]
     Indication: HYPERTENSION
     Dosage: UNK
  23. AMLODIPINE BESYLATE [Concomitant]
     Indication: HYPERTENSION
     Dosage: UNK
     Dates: start: 20091107
  24. CEFEPIME HYDROCHLORIDE [Concomitant]
     Indication: FEBRILE NEUTROPENIA
     Dosage: UNK
     Dates: start: 20091127, end: 20091209
  25. HYDROCORTISONE SODIUM PHOSPHATE [Concomitant]
     Indication: ANTIPYRESIS
     Dosage: UNK
     Dates: start: 20091127, end: 20091217
  26. HYDROCORTISONE SODIUM PHOSPHATE [Concomitant]
     Indication: FEBRILE NEUTROPENIA
  27. PENTAZOCINE LACTATE [Concomitant]
     Indication: PAIN
     Dosage: UNK
     Dates: start: 20091127, end: 20091129
  28. LENOGRASTIM (GENETICAL RECOMBINATION) [Concomitant]
     Indication: NEUTROPHIL COUNT DECREASED
     Dosage: UNK
     Dates: start: 20091127, end: 20100120
  29. ARBEKACIN SULFATE [Concomitant]
     Indication: FEBRILE NEUTROPENIA
     Dosage: UNK
     Dates: start: 20091130, end: 20091206
  30. FUROSEMIDE [Concomitant]
     Indication: CARDIAC FAILURE
     Dosage: UNK
     Dates: start: 20091130, end: 20091203
  31. FUROSEMIDE [Concomitant]
     Indication: OEDEMA
  32. METOCLOPRAMIDE [Concomitant]
     Indication: NAUSEA
     Dosage: UNK
     Dates: start: 20091129, end: 20091214
  33. PROCHLORPERAZINE MALEATE [Concomitant]
     Indication: NAUSEA
     Dosage: UNK
     Dates: start: 20091208, end: 20091208
  34. BIAPENEM [Concomitant]
     Indication: FEBRILE NEUTROPENIA
     Dosage: UNK
     Dates: start: 20091209, end: 20091215
  35. BIAPENEM [Concomitant]
     Indication: STAPHYLOCOCCAL SEPSIS
  36. MIXED AMINOACID CARBOHYDRATE ELECTROLYTE VITAMIN COMBINE [Concomitant]
     Indication: NUTRITIONAL SUPPORT
     Dosage: UNK
     Dates: start: 20091129, end: 20100108
  37. MANGANESE CHLORIDE [Concomitant]
     Indication: NUTRITIONAL SUPPORT
     Dosage: UNK
     Dates: start: 20091129, end: 20100108
  38. ZINC SULFATE [Concomitant]
     Indication: NUTRITIONAL SUPPORT
     Dosage: UNK
     Dates: start: 20091129, end: 20100108
  39. INSULIN HUMAN (GENETICAL RECOMBINATION) [Concomitant]
     Indication: NUTRITIONAL SUPPORT
     Dosage: UNK
     Dates: start: 20091129, end: 20100108
  40. ACYCLOVIR [Concomitant]
     Indication: HERPES VIRUS INFECTION
     Dosage: UNK
     Dates: start: 20091211, end: 20091211
  41. FILGRASTIM (GENETICAL RECOMBINATION) [Concomitant]
     Indication: NEUTROPHIL COUNT DECREASED
     Dosage: UNK
     Dates: start: 20100405, end: 20100419
  42. ACETAMINOPHEN [Concomitant]
     Indication: ANTIPYRESIS
     Dosage: UNK
     Dates: start: 20091109, end: 20100105
  43. DIPHENHYDRAMINE [Concomitant]
     Indication: RASH PRURITIC
     Dosage: UNK
     Dates: start: 20091218
  44. ALBUMIN (HUMAN) [Concomitant]
     Indication: CARDIAC FAILURE
     Dosage: UNK
     Dates: start: 20091208, end: 20091210
  45. ALBUMIN (HUMAN) [Concomitant]
     Indication: PLEURAL EFFUSION
  46. RED BLOOD CELLS, CONCENTRATED [Concomitant]
     Indication: APLASTIC ANAEMIA
     Dosage: UNK
     Dates: start: 20090422, end: 20091225
  47. RED BLOOD CELLS, CONCENTRATED [Concomitant]
     Dosage: UNK
     Dates: start: 20091021, end: 20100107

REACTIONS (6)
  - CYTOMEGALOVIRUS TEST POSITIVE [None]
  - DISSEMINATED INTRAVASCULAR COAGULATION [None]
  - LYMPHOCYTE COUNT DECREASED [None]
  - NEUTROPHIL COUNT DECREASED [None]
  - RENAL IMPAIRMENT [None]
  - STAPHYLOCOCCAL SEPSIS [None]
